FAERS Safety Report 13818851 (Version 1)
Quarter: 2017Q3

REPORT INFORMATION
  Report Type: Report from Study
  Country: US (occurrence: US)
  Receive Date: 20170731
  Receipt Date: 20170731
  Transmission Date: 20171127
  Serious: No
  Sender: FDA-Public Use
  Company Number: US-EXELIXIS-CABO-17007956

PATIENT
  Sex: Male

DRUGS (4)
  1. CLARITIN [Concomitant]
     Active Substance: LORATADINE
  2. LOVASTATIN. [Concomitant]
     Active Substance: LOVASTATIN
  3. CABOMETYX [Suspect]
     Active Substance: CABOZANTINIB S-MALATE
     Indication: RENAL CANCER
     Dosage: 60 MG, QD
     Route: 048
  4. METOPROLOL. [Concomitant]
     Active Substance: METOPROLOL

REACTIONS (8)
  - Dry skin [Unknown]
  - Decreased appetite [Unknown]
  - Weight decreased [Unknown]
  - Fatigue [Unknown]
  - Hypoaesthesia [Unknown]
  - Nausea [Unknown]
  - Constipation [Unknown]
  - Rash [Unknown]
